FAERS Safety Report 4641204-2 (Version None)
Quarter: 2005Q2

REPORT INFORMATION
  Report Type: 
  Country: None (occurrence: None)
  Receive Date: 20050419
  Receipt Date: 20050419
  Transmission Date: 20051028
  Serious: Yes (Hospitalization)
  Sender: FDA-Public Use
  Company Number: None

PATIENT

DRUGS (1)
  1. MORPHINE SULFATE [Suspect]
     Indication: SURGERY
     Dates: start: 20050405, end: 20050407

REACTIONS (6)
  - CONFUSIONAL STATE [None]
  - MEDICATION ERROR [None]
  - NAUSEA [None]
  - SEDATION [None]
  - UNDERDOSE [None]
  - VOMITING [None]
